FAERS Safety Report 24644826 (Version 1)
Quarter: 2024Q4

REPORT INFORMATION
  Report Type: Spontaneous
  Country: FR (occurrence: FR)
  Receive Date: 20241121
  Receipt Date: 20241121
  Transmission Date: 20250115
  Serious: Yes (Other)
  Sender: NOVAST LABORATORIES LTD
  Company Number: FR-NOVAST LABORATORIES INC.-2024NOV000321

PATIENT
  Age: 65 Year
  Sex: Male

DRUGS (1)
  1. ACETAZOLAMIDE [Suspect]
     Active Substance: ACETAZOLAMIDE
     Indication: Intraocular pressure increased
     Dosage: SINGLE ORAL DOSE OF 250 MILLIGRAM
     Route: 048

REACTIONS (1)
  - Choroidal effusion [Recovered/Resolved]
